FAERS Safety Report 9699877 (Version 2)
Quarter: 2014Q1

REPORT INFORMATION
  Report Type: Spontaneous
  Country: US (occurrence: US)
  Receive Date: 20131121
  Receipt Date: 20140129
  Transmission Date: 20141002
  Serious: No
  Sender: FDA-Public Use
  Company Number: US-009507513-1311USA004874

PATIENT
  Age: 28 Year
  Sex: Female
  Weight: 79.82 kg

DRUGS (1)
  1. NUVARING [Suspect]
     Indication: CONTRACEPTION
     Dosage: STRENGTH 0.15 / 0.12
     Route: 067
     Dates: start: 20131022, end: 20131106

REACTIONS (3)
  - Mood swings [Recovered/Resolved]
  - Affect lability [Recovered/Resolved]
  - Depression [Recovered/Resolved]
